FAERS Safety Report 10341232 (Version 6)
Quarter: 2016Q4

REPORT INFORMATION
  Report Type: Report from Study
  Country: CA (occurrence: CA)
  Receive Date: 20140725
  Receipt Date: 20161209
  Transmission Date: 20170206
  Serious: Yes (Other)
  Sender: FDA-Public Use
  Company Number: CA-ROCHE-1164972

PATIENT
  Age: 67 Year
  Sex: Female
  Weight: 56.75 kg

DRUGS (23)
  1. VITAMIN D3 [Concomitant]
     Active Substance: CHOLECALCIFEROL
     Dosage: 1000 UNITS?1 TABLET DAILY
     Route: 048
  2. METFORMIN [Concomitant]
     Active Substance: METFORMIN HYDROCHLORIDE
  3. VITAMIN B COMPLEX [Concomitant]
     Active Substance: CYANOCOBALAMIN\DEXPANTHENOL\NIACINAMIDE\PYRIDOXINE HYDROCHLORIDE\RIBOFLAVIN 5^-PHOSPHATE SODIUM\THIAMINE HYDROCHLORIDE\VITAMIN B COMPLEX
     Route: 048
  4. ALTACE [Concomitant]
     Active Substance: RAMIPRIL
     Dosage: 1 CAPSULE
     Route: 065
  5. DIDROCAL [Concomitant]
     Active Substance: CALCIUM CARBONATE\ETIDRONATE DISODIUM
  6. MELOXICAM. [Concomitant]
     Active Substance: MELOXICAM
  7. DIPHENHYDRAMINE HCL [Concomitant]
     Active Substance: DIPHENHYDRAMINE HYDROCHLORIDE
     Indication: PREMEDICATION
     Route: 048
     Dates: start: 20101102
  8. HYDROCHLOROTHIAZIDE. [Concomitant]
     Active Substance: HYDROCHLOROTHIAZIDE
     Dosage: 1 TABLET DAILY
     Route: 048
  9. CRESTOR [Concomitant]
     Active Substance: ROSUVASTATIN CALCIUM
  10. FOLIC ACID. [Concomitant]
     Active Substance: FOLIC ACID
     Dosage: 1 TABLET/CAPSULES, 5 DAYS/WEEK, SUN-THU
     Route: 048
  11. ASCORBIC ACID. [Concomitant]
     Active Substance: ASCORBIC ACID
     Route: 048
  12. MOBICOX [Concomitant]
     Active Substance: MELOXICAM
     Dosage: 1 TABLET
     Route: 065
  13. PALAFER [Concomitant]
     Active Substance: FERROUS FUMARATE
     Route: 065
  14. RITUXAN [Suspect]
     Active Substance: RITUXIMAB
     Indication: RHEUMATOID ARTHRITIS
     Dosage: LAST DOSE PRIOR TO SAE: 11/DEC/2012
     Route: 042
     Dates: start: 20101102
  15. LOSEC [Concomitant]
     Active Substance: OMEPRAZOLE
     Dosage: 1 TABLET/CAPSULE
     Route: 065
  16. METHYLPREDNISOLONE. [Concomitant]
     Active Substance: METHYLPREDNISOLONE
     Indication: PREMEDICATION
     Route: 042
     Dates: start: 20101102
  17. APO-METFORMIN [Concomitant]
     Dosage: 1 TABLET
     Route: 065
  18. ACETAMINOPHEN. [Concomitant]
     Active Substance: ACETAMINOPHEN
     Indication: PREMEDICATION
     Route: 048
     Dates: start: 20101102
  19. RITUXAN [Suspect]
     Active Substance: RITUXIMAB
     Dosage: 11 DEC 2012, 22 DEC 2012, 14 AUG 2014, 27 AUG 2014 AT 10 MG/ML VIAL
     Route: 042
  20. METHOTREXATE. [Concomitant]
     Active Substance: METHOTREXATE
  21. RAMIPRIL. [Concomitant]
     Active Substance: RAMIPRIL
  22. ZINC CITRATE [Concomitant]
     Active Substance: ZINC CITRATE
     Dosage: 1 TABLET ONCE DAILY
     Route: 048
  23. CRESTOR [Concomitant]
     Active Substance: ROSUVASTATIN CALCIUM
     Route: 065

REACTIONS (10)
  - Campylobacter colitis [Unknown]
  - Oropharyngeal pain [Not Recovered/Not Resolved]
  - Rheumatoid arthritis [Not Recovered/Not Resolved]
  - Blood pressure increased [Unknown]
  - Cataract [Unknown]
  - Arthropathy [Unknown]
  - Left atrial dilatation [Unknown]
  - Drug administration error [Unknown]
  - Cardiac murmur [Unknown]
  - Blood pressure increased [Unknown]

NARRATIVE: CASE EVENT DATE: 20110208
